FAERS Safety Report 8290673-8 (Version None)
Quarter: 2012Q2

REPORT INFORMATION
  Report Type: 
  Country: None (occurrence: None)
  Receive Date: 20120417
  Receipt Date: 20110411
  Transmission Date: 20120825
  Serious: No
  Sender: FDA-Public Use
  Company Number: US-ASTRAZENECA-2011SE20532

PATIENT
  Age: 78 Year
  Sex: Female
  Weight: 68 kg

DRUGS (4)
  1. NORVASC [Concomitant]
  2. NEXIUM [Suspect]
     Route: 048
  3. COZAAR [Concomitant]
  4. LIPITOR [Concomitant]

REACTIONS (1)
  - GASTROINTESTINAL VIRAL INFECTION [None]
